FAERS Safety Report 7531971-2 (Version None)
Quarter: 2011Q2

REPORT INFORMATION
  Report Type: 
  Country: None (occurrence: None)
  Receive Date: 20110608
  Receipt Date: 20110527
  Transmission Date: 20111010
  Serious: Yes (Death)
  Sender: FDA-Public Use
  Company Number: JP-ACTELION-A-CH2011-49489

PATIENT
  Age: 59 Year
  Sex: Female

DRUGS (9)
  1. ALFACALCIDOL [Concomitant]
  2. TOCOPHEROL CONCENTRATE CAP [Concomitant]
  3. TRACLEER [Suspect]
     Indication: PULMONARY ARTERIAL HYPERTENSION
     Dosage: 125 MG, BID
     Route: 048
     Dates: start: 20100126, end: 20100518
  4. PREDNISOLONE [Concomitant]
  5. WARFARIN POTASSIUM [Concomitant]
  6. TADALAFIL [Concomitant]
  7. BERAPROST SODIUM [Concomitant]
  8. DILTIAZEM HYDROCHLORIDE [Concomitant]
  9. OXYGEN [Concomitant]

REACTIONS (3)
  - PYREXIA [None]
  - SEPSIS [None]
  - CANDIDIASIS [None]
